FAERS Safety Report 12721381 (Version 1)
Quarter: 2016Q3

REPORT INFORMATION
  Report Type: Spontaneous
  Country: US (occurrence: US)
  Receive Date: 20160906
  Receipt Date: 20160906
  Transmission Date: 20161109
  Serious: Yes (Disabling)
  Sender: FDA-Public Use
  Company Number: None

PATIENT
  Age: 48 Year
  Sex: Male
  Weight: 73.94 kg

DRUGS (1)
  1. PROPECIA [Suspect]
     Active Substance: FINASTERIDE
     Indication: ANDROGENETIC ALOPECIA
     Dosage: PROPECIA 1 TABLET TAKEN BY MOUTH IN THE MORNING
     Route: 048
     Dates: start: 19980508, end: 20160226

REACTIONS (19)
  - Mental disorder [None]
  - Feeling abnormal [None]
  - Anxiety [None]
  - Depression [None]
  - Drug withdrawal syndrome [None]
  - Paraesthesia [None]
  - Depressed level of consciousness [None]
  - Feeling cold [None]
  - Hypoaesthesia [None]
  - Muscular weakness [None]
  - Impaired quality of life [None]
  - Cognitive disorder [None]
  - Disturbance in attention [None]
  - Bladder disorder [None]
  - Hot flush [None]
  - Emotional disorder [None]
  - Metamorphopsia [None]
  - Vitreous floaters [None]
  - Pollakiuria [None]

NARRATIVE: CASE EVENT DATE: 20160505
